FAERS Safety Report 10431097 (Version 7)
Quarter: 2016Q2

REPORT INFORMATION
  Report Type: Spontaneous
  Country: US (occurrence: US)
  Receive Date: 20140902
  Receipt Date: 20160502
  Transmission Date: 20160815
  Serious: Yes (Life-Threatening, Hospitalization, Other)
  Sender: FDA-Public Use
  Company Number: ADR-2014-01554

PATIENT
  Age: 56 Year
  Sex: Male

DRUGS (2)
  1. BACLOFEN. [Suspect]
     Active Substance: BACLOFEN
     Route: 037
  2. MORPHINE [Suspect]
     Active Substance: MORPHINE
     Route: 037

REACTIONS (8)
  - Accidental overdose [Unknown]
  - Performance status decreased [Unknown]
  - Joint contracture [Unknown]
  - Arthritis [Unknown]
  - Loss of consciousness [Unknown]
  - Hip fracture [Unknown]
  - Memory impairment [Unknown]
  - Muscle tightness [Unknown]
